FAERS Safety Report 12338604 (Version 1)
Quarter: 2016Q2

REPORT INFORMATION
  Report Type: Spontaneous
  Country: US (occurrence: US)
  Receive Date: 20160505
  Receipt Date: 20160505
  Transmission Date: 20160815
  Serious: No
  Sender: FDA-Public Use
  Company Number: US-SA-2016SA035434

PATIENT
  Age: 50 Year
  Sex: Male

DRUGS (9)
  1. SOLOSTAR [Suspect]
     Active Substance: DEVICE
     Indication: TYPE 2 DIABETES MELLITUS
     Dates: start: 2014
  2. SOLOSTAR [Concomitant]
     Active Substance: DEVICE
  3. APIDRA SOLOSTAR [Suspect]
     Active Substance: INSULIN GLULISINE
     Indication: TYPE 2 DIABETES MELLITUS
     Dosage: DOSE: DOSE: 13-18 UNITS (2-3 TIMES DAILY)
     Route: 065
  4. SOLOSTAR [Suspect]
     Active Substance: DEVICE
     Indication: TYPE 2 DIABETES MELLITUS
     Dosage: FRQ..: 2-3 TIMES DAILY
  5. SOLOSTAR [Suspect]
     Active Substance: DEVICE
     Indication: TYPE 2 DIABETES MELLITUS
     Dates: start: 2014
  6. APIDRA SOLOSTAR [Suspect]
     Active Substance: INSULIN GLULISINE
     Indication: TYPE 2 DIABETES MELLITUS
     Dosage: 13-18 UNITS
     Route: 065
     Dates: start: 2014
  7. APIDRA SOLOSTAR [Suspect]
     Active Substance: INSULIN GLULISINE
     Indication: TYPE 2 DIABETES MELLITUS
     Dosage: DOSE: DOSE: 13-18 UNITS (2-3 TIMES DAILY)
     Route: 065
  8. LANTUS SOLOSTAR [Concomitant]
     Active Substance: INSULIN GLARGINE
  9. SOLOSTAR [Suspect]
     Active Substance: DEVICE
     Indication: TYPE 2 DIABETES MELLITUS
     Dosage: FRQ..: 2-3 TIMES DAILY

REACTIONS (4)
  - Injection site mass [Unknown]
  - Incorrect dose administered [Unknown]
  - Injection site pain [Unknown]
  - Visual impairment [Unknown]
